FAERS Safety Report 22250267 (Version 1)
Quarter: 2023Q2

REPORT INFORMATION
  Report Type: Report from Study
  Country: US (occurrence: US)
  Receive Date: 20230425
  Receipt Date: 20230425
  Transmission Date: 20230721
  Serious: Yes (Other)
  Sender: FDA-Public Use
  Company Number: US-ABBVIE-4316018

PATIENT
  Age: 64 Year
  Sex: Female

DRUGS (2)
  1. RINVOQ [Suspect]
     Active Substance: UPADACITINIB
     Indication: Rheumatoid arthritis
     Route: 048
     Dates: start: 20220705
  2. RINVOQ [Suspect]
     Active Substance: UPADACITINIB
     Indication: Rheumatoid arthritis
     Route: 048

REACTIONS (15)
  - Retinal detachment [Unknown]
  - Pain of skin [Recovering/Resolving]
  - Blood pressure increased [Unknown]
  - Sinusitis [Unknown]
  - Rash [Unknown]
  - Photopsia [Unknown]
  - Herpes zoster [Unknown]
  - Hordeolum [Unknown]
  - Vitreous floaters [Unknown]
  - Oropharyngeal pain [Unknown]
  - Acne [Recovering/Resolving]
  - Gait disturbance [Unknown]
  - Blood cholesterol increased [Unknown]
  - Dyspnoea [Unknown]
  - Illness [Not Recovered/Not Resolved]

NARRATIVE: CASE EVENT DATE: 20221201
